FAERS Safety Report 17915565 (Version 2)
Quarter: 2021Q2

REPORT INFORMATION
  Report Type: Report from Study
  Country: CA (occurrence: CA)
  Receive Date: 20200619
  Receipt Date: 20210618
  Transmission Date: 20210717
  Serious: Yes (Hospitalization, Other)
  Sender: FDA-Public Use
  Company Number: CA-AMGEN-CANCT2020097217

PATIENT
  Age: 55 Year
  Sex: Female

DRUGS (1)
  1. AIMOVIG [Suspect]
     Active Substance: ERENUMAB-AOOE
     Indication: MIGRAINE
     Dosage: 1 DOSAGE FORM
     Route: 065
     Dates: start: 20200114

REACTIONS (3)
  - Epilepsy [Unknown]
  - Coma [Unknown]
  - Device defective [Unknown]

NARRATIVE: CASE EVENT DATE: 2020
